FAERS Safety Report 4802286-8 (Version None)
Quarter: 2005Q4

REPORT INFORMATION
  Report Type: 
  Country: None (occurrence: None)
  Receive Date: 20051012
  Receipt Date: 20050930
  Transmission Date: 20060501
  Serious: Yes (Death, Hospitalization)
  Sender: FDA-Public Use
  Company Number: US-2005-013734

PATIENT
  Age: 65 Year
  Sex: Female

DRUGS (3)
  1. BETASERON (INTERFERON BETA - 1B) INJECTION, 250UG [Suspect]
     Indication: RELAPSING-REMITTING MULTIPLE SCLEROSIS
     Dosage: 8 MIU, EVERY 2D, SUBCUTANEOUS
     Route: 058
     Dates: start: 19990629
  2. INSULIN [Concomitant]
  3. FOSAMAX [Concomitant]

REACTIONS (4)
  - FALL [None]
  - SKULL FRACTURE [None]
  - TRAUMATIC BRAIN INJURY [None]
  - TRAUMATIC FRACTURE [None]
